FAERS Safety Report 20146244 (Version 1)
Quarter: 2021Q4

REPORT INFORMATION
  Report Type: Spontaneous
  Country: US (occurrence: None)
  Receive Date: 20211203
  Receipt Date: 20211203
  Transmission Date: 20220303
  Serious: Yes (Death)
  Sender: FDA-Public Use
  Company Number: US-ROCHE-2972576

PATIENT
  Age: 58 Year
  Sex: Male

DRUGS (1)
  1. ESBRIET [Suspect]
     Active Substance: PIRFENIDONE
     Indication: Product used for unknown indication
     Dosage: 3 TIMES A DAY
     Route: 048
     Dates: start: 202005, end: 20211126

REACTIONS (1)
  - Death [Fatal]

NARRATIVE: CASE EVENT DATE: 20211126
